FAERS Safety Report 12300740 (Version 1)
Quarter: 2016Q2

REPORT INFORMATION
  Report Type: Spontaneous
  Country: US (occurrence: US)
  Receive Date: 20160425
  Receipt Date: 20160425
  Transmission Date: 20160815
  Serious: No
  Sender: FDA-Public Use
  Company Number: ADR-2015-01423

PATIENT
  Age: 74 Year
  Sex: Male

DRUGS (9)
  1. DIOVAN [Suspect]
     Active Substance: VALSARTAN
     Route: 048
  2. VALIUM [Suspect]
     Active Substance: DIAZEPAM
     Dosage: 1 TABLET THREE TIMES DAILY AS NEEDED
     Route: 048
  3. COMPOUNDED BACLOFEN [Suspect]
     Active Substance: BACLOFEN
     Dosage: 372.2MCG/DAY
     Route: 037
  4. BUPIVACAINE. [Suspect]
     Active Substance: BUPIVACAINE
     Dosage: 7.2MG/DAY
     Route: 037
  5. BUPIVACAINE. [Suspect]
     Active Substance: BUPIVACAINE
     Dosage: 7.443MG/DAY
  6. LORTAB [Suspect]
     Active Substance: ACETAMINOPHEN\HYDROCODONE BITARTRATE
     Route: 048
  7. BUPIVACAINE. [Suspect]
     Active Substance: BUPIVACAINE
     Dosage: 3.722MG/DAY
     Route: 037
  8. LISINOPRIL. [Suspect]
     Active Substance: LISINOPRIL
     Indication: PAIN
     Dosage: 1 TABLET EVERY 6 HOURS AS NEEDED FOR PAIN
     Route: 048
  9. METFORMIN HCL [Suspect]
     Active Substance: METFORMIN HYDROCHLORIDE
     Route: 048

REACTIONS (4)
  - Hypoaesthesia [Recovered/Resolved]
  - Muscular weakness [Recovered/Resolved]
  - Gait disturbance [Recovered/Resolved]
  - Muscle spasms [Recovered/Resolved]
